FAERS Safety Report 13404351 (Version 2)
Quarter: 2017Q2

REPORT INFORMATION
  Report Type: Report from Study
  Country: MX (occurrence: MX)
  Receive Date: 20170405
  Receipt Date: 20170405
  Transmission Date: 20170830
  Serious: Yes (Other)
  Sender: FDA-Public Use
  Company Number: ALCN2017MX002482

PATIENT
  Sex: Male

DRUGS (1)
  1. DUOTRAV PQ [Suspect]
     Active Substance: TIMOLOL\TRAVOPROST
     Indication: GLAUCOMA
     Dosage: 1 GTT, QHS
     Route: 065
     Dates: start: 2014

REACTIONS (1)
  - Visual field defect [Unknown]

NARRATIVE: CASE EVENT DATE: 2014
